FAERS Safety Report 6850487-X (Version None)
Quarter: 2010Q3

REPORT INFORMATION
  Report Type: 
  Country: None (occurrence: None)
  Receive Date: 20100716
  Receipt Date: 20071130
  Transmission Date: 20110219
  Serious: No
  Sender: FDA-Public Use
  Company Number: US-PFIZER INC-2007088952

PATIENT
  Sex: Female
  Weight: 47.63 kg

DRUGS (4)
  1. CHANTIX [Suspect]
     Indication: SMOKING CESSATION THERAPY
     Dates: start: 20070901, end: 20070901
  2. CELEXA [Concomitant]
  3. PREMPRO [Concomitant]
  4. TRAZODONE HYDROCHLORIDE [Concomitant]

REACTIONS (5)
  - DYSPEPSIA [None]
  - FEELING ABNORMAL [None]
  - FLATULENCE [None]
  - NAUSEA [None]
  - OESOPHAGEAL PAIN [None]
